FAERS Safety Report 23030761 (Version 2)
Quarter: 2023Q4

REPORT INFORMATION
  Report Type: Spontaneous
  Country: US (occurrence: US)
  Receive Date: 20231005
  Receipt Date: 20231215
  Transmission Date: 20240110
  Serious: No
  Sender: FDA-Public Use
  Company Number: US-BRISTOL-MYERS SQUIBB COMPANY-2023-140635

PATIENT
  Age: 38 Year
  Sex: Male

DRUGS (1)
  1. ZEPOSIA [Suspect]
     Active Substance: OZANIMOD HYDROCHLORIDE
     Indication: Product used for unknown indication
     Route: 048
     Dates: start: 202305, end: 202308

REACTIONS (5)
  - Hypersensitivity [Unknown]
  - Rash [Unknown]
  - Herpes virus infection [Unknown]
  - Hyperglycaemia [Unknown]
  - Red blood cell abnormality [Unknown]
